FAERS Safety Report 7380659-X (Version None)
Quarter: 2011Q1

REPORT INFORMATION
  Report Type: 
  Country: None (occurrence: None)
  Receive Date: 20110321
  Receipt Date: 20110303
  Transmission Date: 20110831
  Serious: Yes (Other)
  Sender: FDA-Public Use
  Company Number: 2011P1004132

PATIENT
  Age: 82 Year
  Sex: Female
  Weight: 68.4932 kg

DRUGS (12)
  1. FISH OIL [Concomitant]
  2. METFORMIN (NO PREF. NAME) [Suspect]
     Indication: DIABETES MELLITUS
     Dates: start: 20101217
  3. ^AZITIA^ [Concomitant]
  4. FUROSEMIDE [Concomitant]
  5. LANOXIN [Concomitant]
  6. WARFARIN SODIUM [Suspect]
     Indication: ANTICOAGULANT THERAPY
     Dosage: SEE IMAGE
     Route: 048
     Dates: start: 20030521, end: 20110116
  7. WARFARIN SODIUM [Suspect]
     Indication: ANTICOAGULANT THERAPY
     Dosage: SEE IMAGE
     Route: 048
     Dates: start: 20110124
  8. WARFARIN SODIUM [Suspect]
     Indication: ANTICOAGULANT THERAPY
     Dosage: SEE IMAGE
     Route: 048
     Dates: start: 20110117, end: 20110123
  9. WARFARIN SODIUM [Suspect]
     Indication: ANTICOAGULANT THERAPY
     Dosage: SEE IMAGE
     Route: 048
     Dates: start: 20110117, end: 20110123
  10. WARFARIN SODIUM [Suspect]
     Indication: ANTICOAGULANT THERAPY
     Dosage: SEE IMAGE
     Route: 048
     Dates: start: 20110124
  11. SPIRIVA [Concomitant]
  12. ACCUPRIL [Concomitant]

REACTIONS (3)
  - DIABETES MELLITUS [None]
  - INTERNATIONAL NORMALISED RATIO FLUCTUATION [None]
  - DRUG INTERACTION [None]
